FAERS Safety Report 5794617-X (Version None)
Quarter: 2008Q2

REPORT INFORMATION
  Report Type: 
  Country: None (occurrence: None)
  Receive Date: 20080627
  Receipt Date: 20080627
  Transmission Date: 20081010
  Serious: Yes (Death, Hospitalization)
  Sender: FDA-Public Use
  Company Number: None

PATIENT
  Sex: Male
  Weight: 66.6788 kg

DRUGS (9)
  1. EPIRUBICIN [Suspect]
     Indication: NEOPLASM MALIGNANT
     Dosage: PRIOR TO ADMISSION
  2. XELODA [Suspect]
  3. OXALIPLATIN [Suspect]
  4. EPOGEN [Concomitant]
  5. ALOXI [Concomitant]
  6. DECADRON [Concomitant]
  7. COMPAZINE [Concomitant]
  8. IMODIUM [Concomitant]
  9. ANTIBIOTIC [Concomitant]

REACTIONS (4)
  - DEHYDRATION [None]
  - DIARRHOEA [None]
  - NEUTROPENIA [None]
  - NO THERAPEUTIC RESPONSE [None]
